FAERS Safety Report 5869789-9 (Version None)
Quarter: 2008Q3

REPORT INFORMATION
  Report Type: 
  Country: None (occurrence: None)
  Receive Date: 20080904
  Receipt Date: 20080821
  Transmission Date: 20090109
  Serious: Yes (Hospitalization, Other)
  Sender: FDA-Public Use
  Company Number: CA-AVENTIS-200710507GDDC

PATIENT
  Age: 73 Year
  Sex: Male

DRUGS (9)
  1. INSULIN GLARGINE [Suspect]
     Indication: DIABETES MELLITUS
     Route: 058
     Dates: start: 20041108, end: 20061129
  2. OPTIPEN (INSULIN PUMP) [Suspect]
     Indication: DIABETES MELLITUS
  3. CODE UNBROKEN [Suspect]
     Dosage: DOSE: UNK
     Route: 048
     Dates: start: 20041108
  4. ASPIRIN [Concomitant]
     Indication: PROPHYLAXIS
  5. CLOPIDOGREL [Concomitant]
     Indication: PROPHYLAXIS
  6. ATORVASTATIN [Concomitant]
     Indication: LIPIDS INCREASED
  7. AMLODIPINE [Concomitant]
  8. ACEBUTOLOL [Concomitant]
  9. RAMIPRIL [Concomitant]
     Dates: start: 20041101

REACTIONS (3)
  - HYPERHIDROSIS [None]
  - INCOHERENT [None]
  - MYOCARDIAL INFARCTION [None]
